FAERS Safety Report 6801881-4 (Version None)
Quarter: 2010Q2

REPORT INFORMATION
  Report Type: 
  Country: None (occurrence: None)
  Receive Date: 20100629
  Receipt Date: 20100622
  Transmission Date: 20101027
  Serious: Yes (Other)
  Sender: FDA-Public Use
  Company Number: BR-SANOFI-AVENTIS-2010SA036371

PATIENT
  Age: 63 Year
  Sex: Female
  Weight: 68 kg

DRUGS (4)
  1. LANTUS [Suspect]
     Indication: TYPE 2 DIABETES MELLITUS
     Route: 058
     Dates: start: 20030101
  2. OPTIPEN [Suspect]
  3. METFORMIN HCL [Concomitant]
     Indication: TYPE 2 DIABETES MELLITUS
     Route: 048
  4. ENALAPRIL MALEATE [Concomitant]
     Route: 048

REACTIONS (2)
  - CONDITION AGGRAVATED [None]
  - VISUAL IMPAIRMENT [None]
